FAERS Safety Report 20504902 (Version 1)
Quarter: 2022Q1

REPORT INFORMATION
  Report Type: Spontaneous
  Country: US (occurrence: US)
  Receive Date: 20220223
  Receipt Date: 20220223
  Transmission Date: 20220423
  Serious: No
  Sender: FDA-Public Use
  Company Number: US-CELGENE-USA-20220205996

PATIENT
  Age: 80 Year
  Sex: Male

DRUGS (26)
  1. POMALYST [Suspect]
     Active Substance: POMALIDOMIDE
     Indication: Plasma cell myeloma
     Dosage: 2 MILLIGRAM
     Route: 048
     Dates: start: 20210220
  2. BOOSTRIX [Concomitant]
     Active Substance: TETANUS TOXOID, REDUCED DIPHTHERIA TOXOID AND ACELLULAR PERTUSSIS VACCINE, ADSORBED ANTIGENS
     Indication: Product used for unknown indication
     Route: 030
  3. CEPHALEXIN [Concomitant]
     Active Substance: CEPHALEXIN
     Indication: Product used for unknown indication
     Dosage: 250 MILLIGRAM
     Route: 048
  4. CLOPIDOGREL [Concomitant]
     Active Substance: CLOPIDOGREL BISULFATE
     Indication: Product used for unknown indication
     Dosage: 75 MILLIGRAM
     Route: 048
  5. Covid-19 [Concomitant]
     Indication: Product used for unknown indication
     Route: 030
  6. DONEPEZIL [Concomitant]
     Active Substance: DONEPEZIL
     Indication: Product used for unknown indication
     Dosage: 10 MILLIGRAM
     Route: 048
  7. DONEPEZIL [Concomitant]
     Active Substance: DONEPEZIL
     Dosage: 5 MILLIGRAM
     Route: 048
  8. FLUAD NOS [Concomitant]
     Active Substance: INFLUENZA VIRUS VACCINE
     Indication: Product used for unknown indication
     Dosage: .5 MILLIGRAM
     Route: 065
     Dates: start: 2021, end: 2022
  9. FLUAD NOS [Concomitant]
     Active Substance: INFLUENZA VIRUS VACCINE
     Dosage: 5 MILLIGRAM
     Route: 048
     Dates: start: 202104
  10. FLUZONE HIGH-DOSE NOS [Concomitant]
     Active Substance: INFLUENZA A VIRUS A/CALIFORNIA/7/2009 X-179A (H1N1) ANTIGEN (FORMALDEHYDE INACTIVATED)\INFLUENZA A V
     Indication: Product used for unknown indication
     Dosage: .7 MILLIGRAM
     Route: 065
     Dates: start: 2021, end: 2022
  11. FLUZONE HIGH-DOSE NOS [Concomitant]
     Active Substance: INFLUENZA A VIRUS A/CALIFORNIA/7/2009 X-179A (H1N1) ANTIGEN (FORMALDEHYDE INACTIVATED)\INFLUENZA A V
     Dosage: 5 MILLIGRAM
     Route: 048
     Dates: start: 202104
  12. LORAZEPAM [Concomitant]
     Active Substance: LORAZEPAM
     Indication: Product used for unknown indication
     Dosage: .5 MILLIGRAM
     Route: 048
  13. LORAZEPAM [Concomitant]
     Active Substance: LORAZEPAM
     Dosage: 5 MILLIGRAM
     Route: 048
     Dates: start: 202104
  14. PREVENAR [Concomitant]
     Active Substance: PNEUMOCOCCAL 7-VALENT CONJUGATE VACCINE (DIPHTHERIA CRM197 PROTEIN)
     Indication: Product used for unknown indication
     Dosage: .5 MILLILITER
     Route: 065
  15. ROSUVASTATIN [Concomitant]
     Active Substance: ROSUVASTATIN
     Indication: Product used for unknown indication
     Dosage: 10 MILLIGRAM
     Route: 048
  16. ACETAMINOPHEN [Concomitant]
     Active Substance: ACETAMINOPHEN
     Indication: Product used for unknown indication
     Route: 048
  17. ACYCLOVIR [Concomitant]
     Active Substance: ACYCLOVIR
     Indication: Product used for unknown indication
     Route: 048
  18. CALCIUM [Concomitant]
     Active Substance: CALCIUM
     Indication: Product used for unknown indication
     Route: 048
  19. DARZALEX [Concomitant]
     Active Substance: DARATUMUMAB
     Indication: Product used for unknown indication
     Route: 065
  20. FERROUS SULFATE [Concomitant]
     Active Substance: FERROUS SULFATE
     Indication: Product used for unknown indication
     Route: 048
  21. MAGNESIUM OXIDE [Concomitant]
     Active Substance: MAGNESIUM OXIDE
     Indication: Product used for unknown indication
     Route: 048
  22. ONDANSETRON [Concomitant]
     Active Substance: ONDANSETRON
     Indication: Product used for unknown indication
     Route: 048
  23. PROCHLORPERAZINE [Concomitant]
     Active Substance: PROCHLORPERAZINE
     Indication: Product used for unknown indication
     Route: 065
  24. PROCRIT [Concomitant]
     Active Substance: ERYTHROPOIETIN
     Indication: Product used for unknown indication
     Route: 065
  25. LOSARTAN [Concomitant]
     Active Substance: LOSARTAN
     Indication: Product used for unknown indication
     Route: 048
  26. MIRTAZAPINE [Concomitant]
     Active Substance: MIRTAZAPINE
     Indication: Product used for unknown indication
     Route: 048

REACTIONS (1)
  - Back pain [Unknown]

NARRATIVE: CASE EVENT DATE: 20220201
